FAERS Safety Report 8875044 (Version 1)
Quarter: 2012Q4

REPORT INFORMATION
  Report Type: 
  Country: US (occurrence: US)
  Receive Date: 20121029
  Receipt Date: 20121029
  Transmission Date: 20130627
  Serious: No
  Sender: FDA-Public Use
  Company Number: US-PFIZER INC-2012266508

PATIENT
  Sex: Female

DRUGS (17)
  1. DILANTIN [Suspect]
     Dosage: UNK
  2. PREMARIN [Suspect]
     Dosage: UNK
  3. MEDROXYPROGESTERONE ACETATE [Suspect]
     Dosage: UNK
  4. BUSPAR [Suspect]
     Dosage: UNK
  5. COGENTIN [Suspect]
     Dosage: UNK
  6. DEPAKOTE [Suspect]
     Dosage: UNK
  7. ELAVIL [Suspect]
     Dosage: UNK
  8. FELBAMATE [Suspect]
     Dosage: UNK
  9. HALDOL [Suspect]
     Dosage: UNK
  10. LAMICTAL [Suspect]
     Dosage: UNK
  11. MELLARIL [Suspect]
     Dosage: UNK
  12. PHENOBARBITAL [Suspect]
     Dosage: UNK
  13. RISPERDAL [Suspect]
     Dosage: UNK
  14. TEGRETOL [Suspect]
     Dosage: UNK
  15. TRILEPTAL [Suspect]
     Dosage: UNK
  16. VALPROIC ACID [Suspect]
     Dosage: UNK
  17. ZYPREXA [Suspect]
     Dosage: UNK

REACTIONS (1)
  - Drug hypersensitivity [Unknown]
